FAERS Safety Report 6007507-4 (Version None)
Quarter: 2008Q4

REPORT INFORMATION
  Report Type: 
  Country: None (occurrence: None)
  Receive Date: 20081217
  Receipt Date: 20080430
  Transmission Date: 20090506
  Serious: No
  Sender: FDA-Public Use
  Company Number: US-ASTRAZENECA-2008UW08918

PATIENT
  Sex: Female

DRUGS (6)
  1. CRESTOR [Suspect]
     Indication: BLOOD CHOLESTEROL INCREASED
     Route: 048
  2. TEGRETOL [Concomitant]
  3. LASIX [Concomitant]
  4. TRAMADOL HCL [Concomitant]
  5. METOPROLOL TARTRATE [Concomitant]
  6. KEPPRA [Concomitant]

REACTIONS (4)
  - DYSSTASIA [None]
  - JOINT SWELLING [None]
  - MYALGIA [None]
  - PAIN IN EXTREMITY [None]
